FAERS Safety Report 5136826-9 (Version None)
Quarter: 2006Q4

REPORT INFORMATION
  Report Type: 
  Country: None (occurrence: None)
  Receive Date: 20061023
  Receipt Date: 20061006
  Transmission Date: 20070319
  Serious: Yes (Death, Life-Threatening, Other)
  Sender: FDA-Public Use
  Company Number: 060406-0000319

PATIENT
  Age: 16 Day
  Sex: Female

DRUGS (7)
  1. INDOCIN [Suspect]
     Indication: PATENT DUCTUS ARTERIOSUS
     Dosage: IV
     Route: 042
     Dates: start: 20050627, end: 20050629
  2. BERACTANT [Concomitant]
  3. AMIKACIN SULFATE [Concomitant]
  4. AMPICILLIN SODIUM [Concomitant]
  5. VANCOMYCIN HYDROCHLORIDE [Concomitant]
  6. GENTAMICIN SULFATE [Concomitant]
  7. GALENIC  / PANIPENEM / BETAMIPRON/ [Concomitant]

REACTIONS (6)
  - ABDOMINAL DISTENSION [None]
  - BACTERIAL SEPSIS [None]
  - BOWEL MOVEMENT IRREGULARITY [None]
  - DISSEMINATED INTRAVASCULAR COAGULATION [None]
  - GASTROINTESTINAL HAEMORRHAGE [None]
  - SMALL INTESTINAL PERFORATION [None]
